FAERS Safety Report 7562745-4 (Version None)
Quarter: 2011Q2

REPORT INFORMATION
  Report Type: 
  Country: None (occurrence: None)
  Receive Date: 20110622
  Receipt Date: 20110613
  Transmission Date: 20111010
  Serious: Yes (Hospitalization, Other)
  Sender: FDA-Public Use
  Company Number: NZ-ABBOTT-11P-118-0732123-00

PATIENT
  Sex: Female

DRUGS (5)
  1. PARADEX [Concomitant]
     Indication: PRODUCT USED FOR UNKNOWN INDICATION
  2. AMITRIPTYLINE HCL [Concomitant]
     Indication: PRODUCT USED FOR UNKNOWN INDICATION
  3. CREON [Suspect]
     Indication: PRODUCT USED FOR UNKNOWN INDICATION
  4. OXYCODONE HCL [Concomitant]
     Indication: PRODUCT USED FOR UNKNOWN INDICATION
     Dosage: 10MG EVERY 2-4 HOURS AS NEEDED
  5. LEVLEN 28 [Concomitant]
     Indication: PRODUCT USED FOR UNKNOWN INDICATION

REACTIONS (15)
  - BLOOD AMYLASE INCREASED [None]
  - VISCERAL PAIN [None]
  - GASTRITIS [None]
  - REFLUX GASTRITIS [None]
  - ABDOMINAL PAIN UPPER [None]
  - VOMITING [None]
  - GASTRIC ULCER [None]
  - PAIN [None]
  - SPHINCTER OF ODDI DYSFUNCTION [None]
  - GASTROINTESTINAL DISORDER [None]
  - ABDOMINAL DISTENSION [None]
  - NAUSEA [None]
  - ABDOMINAL PAIN [None]
  - PANCREATITIS ACUTE [None]
  - CHOLESTASIS [None]
